FAERS Safety Report 5142084-1 (Version None)
Quarter: 2006Q4

REPORT INFORMATION
  Report Type: 
  Country: None (occurrence: None)
  Receive Date: 20061027
  Receipt Date: 20061011
  Transmission Date: 20070319
  Serious: Yes (Other)
  Sender: FDA-Public Use
  Company Number: US-2006-030482

PATIENT
  Age: 38 Year
  Sex: Male

DRUGS (2)
  1. BETASERON [Suspect]
     Indication: RELAPSING-REMITTING MULTIPLE SCLEROSIS
     Dosage: 8 MIU, EVERY 2D , SUBCUTANEOUS
     Route: 058
     Dates: start: 20060530
  2. IBUPROFEN [Concomitant]

REACTIONS (5)
  - LABORATORY TEST ABNORMAL [None]
  - MUSCULOSKELETAL STIFFNESS [None]
  - MYALGIA [None]
  - RHEUMATOID ARTHRITIS [None]
  - SYSTEMIC LUPUS ERYTHEMATOSUS [None]
